FAERS Safety Report 9166096 (Version 2)
Quarter: 2013Q1

REPORT INFORMATION
  Report Type: Report from Study
  Country: RU (occurrence: RU)
  Receive Date: 20130315
  Receipt Date: 20130325
  Transmission Date: 20140127
  Serious: Yes (Other)
  Sender: FDA-Public Use
  Company Number: RU-ROCHE-1202528

PATIENT
  Age: 67 Year
  Sex: Female
  Weight: 50 kg

DRUGS (8)
  1. BEVACIZUMAB [Suspect]
     Indication: COLON CANCER
     Route: 065
     Dates: start: 20121109, end: 20130222
  2. BEVACIZUMAB [Suspect]
     Indication: METASTASES TO LIVER
  3. 5-FLUOROURACIL [Concomitant]
     Indication: COLON CANCER
     Route: 040
     Dates: start: 20121109
  4. 5-FLUOROURACIL [Concomitant]
     Indication: METASTASES TO LIVER
     Route: 041
     Dates: end: 20130222
  5. LEUCOVORIN [Concomitant]
     Indication: COLON CANCER
     Route: 041
     Dates: start: 20121109, end: 20130222
  6. LEUCOVORIN [Concomitant]
     Indication: METASTASES TO LIVER
  7. IRINOTECAN [Concomitant]
     Indication: COLON CANCER
     Route: 041
     Dates: start: 20121109, end: 20130222
  8. IRINOTECAN [Concomitant]
     Indication: METASTASES TO LIVER

REACTIONS (4)
  - Disease progression [Not Recovered/Not Resolved]
  - Blood bilirubin increased [Unknown]
  - Alanine aminotransferase increased [Unknown]
  - Aspartate aminotransferase increased [Unknown]
